FAERS Safety Report 8537675-1 (Version None)
Quarter: 2012Q3

REPORT INFORMATION
  Report Type: 
  Country: None (occurrence: None)
  Receive Date: 20120725
  Receipt Date: 20120716
  Transmission Date: 20120928
  Serious: No
  Sender: FDA-Public Use
  Company Number: US-B.I. PHARMACEUTICALS,INC./RIDGEFIELD-2012-BP-15824BP

PATIENT
  Sex: Female

DRUGS (31)
  1. MEDICATION NOT FURTHER SPECIFIED [Concomitant]
     Indication: FAECES HARD
  2. MEDICATION NOT FURTHER SPECIFIED [Concomitant]
  3. MEDICATION NOT FURTHER SPECIFIED [Concomitant]
  4. SPIRIVA [Suspect]
     Indication: CHRONIC OBSTRUCTIVE PULMONARY DISEASE
     Dosage: 18 MCG
     Route: 055
     Dates: start: 19990101
  5. MEDICATION NOT FURTHER SPECIFIED [Concomitant]
  6. MELOXICAM [Concomitant]
  7. MEDICATION NOT FURTHER SPECIFIED [Concomitant]
  8. MEDICATION NOT FURTHER SPECIFIED [Concomitant]
  9. MEDICATION NOT FURTHER SPECIFIED [Concomitant]
  10. MEDICATION NOT FURTHER SPECIFIED [Concomitant]
  11. MEDICATION NOT FURTHER SPECIFIED [Concomitant]
  12. VITAMIN [Concomitant]
  13. MEDICATION NOT FURTHER SPECIFIED [Concomitant]
  14. MEDICATION NOT FURTHER SPECIFIED [Concomitant]
  15. MEDICATION NOT FURTHER SPECIFIED [Concomitant]
  16. ASPIRIN [Concomitant]
  17. MEDICATION NOT FURTHER SPECIFIED [Concomitant]
  18. MEDICATION NOT FURTHER SPECIFIED [Concomitant]
  19. MEDICATION NOT FURTHER SPECIFIED [Concomitant]
     Indication: DIABETES MELLITUS
  20. MEDICATION NOT FURTHER SPECIFIED [Concomitant]
     Indication: RENAL DISORDER
  21. MEDICATION NOT FURTHER SPECIFIED [Concomitant]
     Indication: CARDIAC DISORDER
  22. MEDICATION NOT FURTHER SPECIFIED [Concomitant]
  23. MEDICATION NOT FURTHER SPECIFIED [Concomitant]
  24. SPIRIVA [Suspect]
     Route: 048
     Dates: start: 20120716, end: 20120716
  25. MEDICATION NOT FURTHER SPECIFIED [Concomitant]
     Indication: BLOOD PRESSURE
  26. MEDICATION NOT FURTHER SPECIFIED [Concomitant]
  27. MEDICATION NOT FURTHER SPECIFIED [Concomitant]
  28. IRON [Concomitant]
  29. MEDICATION NOT FURTHER SPECIFIED [Concomitant]
  30. MEDICATION NOT FURTHER SPECIFIED [Concomitant]
  31. MEDICATION NOT FURTHER SPECIFIED [Concomitant]

REACTIONS (2)
  - CATARACT [None]
  - INCORRECT ROUTE OF DRUG ADMINISTRATION [None]
